FAERS Safety Report 9665775 (Version 1)
Quarter: 2013Q4

REPORT INFORMATION
  Report Type: Spontaneous
  Country: US (occurrence: None)
  Receive Date: 20131031
  Receipt Date: 20131031
  Transmission Date: 20140711
  Serious: Yes (Disabling)
  Sender: FDA-Public Use
  Company Number: None

PATIENT
  Age: 60 Year
  Sex: Female
  Weight: 81.65 kg

DRUGS (1)
  1. ALBUTEROL SULFATE INHALATION SOL 2.5ML NEPHRON PHARMACEUTICALS [Suspect]
     Indication: BRONCHITIS CHRONIC
     Route: 055

REACTIONS (2)
  - Drug ineffective [None]
  - Poor quality drug administered [None]
